FAERS Safety Report 13276641 (Version 8)
Quarter: 2017Q3

REPORT INFORMATION
  Report Type: Spontaneous
  Country: KR (occurrence: KR)
  Receive Date: 20170228
  Receipt Date: 20170922
  Transmission Date: 20171127
  Serious: Yes (Hospitalization, Other)
  Sender: FDA-Public Use
  Company Number: KR-009507513-1702KOR011071

PATIENT
  Age: 62 Year
  Sex: Male
  Weight: 63.6 kg

DRUGS (61)
  1. EMEND (FOSAPREPITANT DIMEGLUMINE) [Suspect]
     Active Substance: FOSAPREPITANT DIMEGLUMINE
     Dosage: 150 MG, ONCE
     Route: 042
     Dates: start: 20170131, end: 20170131
  2. ANZATAX (PACLITAXEL) [Concomitant]
     Active Substance: PACLITAXEL
     Dosage: 86 MG, ONCE, CYCLE 3
     Route: 042
     Dates: start: 20170117, end: 20170117
  3. ANZATAX (PACLITAXEL) [Concomitant]
     Active Substance: PACLITAXEL
     Dosage: 87 MG, ONCE, CYCLE 5
     Route: 042
     Dates: start: 20170131, end: 20170131
  4. CISPLAN [Concomitant]
     Active Substance: CISPLATIN
     Dosage: 34 MG, ONCE, CYCLE 4; STRENGTH: 50MG/100ML
     Route: 042
     Dates: start: 20170124, end: 20170124
  5. DEXAMETHASONE. [Concomitant]
     Active Substance: DEXAMETHASONE
     Dosage: 4 MG, BID
     Route: 048
     Dates: start: 20170208, end: 20170210
  6. CHLORPHENIRAMINE MALEATE. [Concomitant]
     Active Substance: CHLORPHENIRAMINE MALEATE
     Dosage: 4 MG, ONCE
     Route: 042
     Dates: start: 20170110, end: 20170110
  7. CURAN [Concomitant]
     Active Substance: RANITIDINE HYDROCHLORIDE
     Dosage: 150 MG, BID
     Route: 048
     Dates: start: 20170208, end: 20170210
  8. LASIX [Concomitant]
     Active Substance: FUROSEMIDE
     Dosage: 20 MG, ONCE; STRENGTH: 20MG/2ML
     Route: 042
     Dates: start: 20170117, end: 20170117
  9. LASIX [Concomitant]
     Active Substance: FUROSEMIDE
     Dosage: 20 MG, ONCE; STRENGTH: 20MG/2ML
     Route: 042
     Dates: start: 20170131, end: 20170131
  10. EMEND (FOSAPREPITANT DIMEGLUMINE) [Suspect]
     Active Substance: FOSAPREPITANT DIMEGLUMINE
     Dosage: 150 MG, ONCE
     Route: 042
     Dates: start: 20170207, end: 20170207
  11. DEXAMETHASONE SODIUM PHOSPHATE. [Concomitant]
     Active Substance: DEXAMETHASONE SODIUM PHOSPHATE
     Dosage: 12 MG, ONCE; STRENGTH: 5 MG/ML
     Route: 042
     Dates: start: 20170124, end: 20170124
  12. SANCUSO [Concomitant]
     Active Substance: GRANISETRON
     Dosage: 1 EA, QD; STRENGTH: 80.2X66.6 MM2
     Route: 062
     Dates: start: 20170109, end: 20170115
  13. OLMETEC [Concomitant]
     Active Substance: OLMESARTAN MEDOXOMIL
     Indication: HYPERTENSION
     Dosage: 20 MG, QD
     Route: 048
     Dates: start: 2007, end: 20170116
  14. CURAN [Concomitant]
     Active Substance: RANITIDINE HYDROCHLORIDE
     Dosage: 50 MG, ONCE; STRENGTH: 50MG/2ML
     Route: 042
     Dates: start: 20170110, end: 20170110
  15. LASIX [Concomitant]
     Active Substance: FUROSEMIDE
     Indication: PROPHYLAXIS
     Dosage: 20 MG, ONCE; STRENGTH: 20MG/2ML
     Route: 042
     Dates: start: 20161229, end: 20161229
  16. LASIX [Concomitant]
     Active Substance: FUROSEMIDE
     Dosage: 20 MG, ONCE; STRENGTH: 20MG/2ML
     Route: 042
     Dates: start: 20170124, end: 20170124
  17. EMEND (FOSAPREPITANT DIMEGLUMINE) [Suspect]
     Active Substance: FOSAPREPITANT DIMEGLUMINE
     Dosage: 150 MG, ONCE
     Route: 042
     Dates: start: 20170124, end: 20170124
  18. ANZATAX (PACLITAXEL) [Concomitant]
     Active Substance: PACLITAXEL
     Indication: NON-SMALL CELL LUNG CANCER
     Dosage: 85 MG, ONCE, CYCLE 1
     Route: 042
     Dates: start: 20161229, end: 20161229
  19. CISPLAN [Concomitant]
     Active Substance: CISPLATIN
     Indication: NON-SMALL CELL LUNG CANCER
     Dosage: 34 MG, ONCE, CYCLE 1; STRENGTH: 50MG/100ML
     Route: 042
     Dates: start: 20161229, end: 20161229
  20. DEXAMETHASONE SODIUM PHOSPHATE. [Concomitant]
     Active Substance: DEXAMETHASONE SODIUM PHOSPHATE
     Dosage: 12 MG, ONCE; STRENGTH: 5 MG/ML
     Route: 042
     Dates: start: 20170110, end: 20170110
  21. DEXAMETHASONE. [Concomitant]
     Active Substance: DEXAMETHASONE
     Dosage: 4 MG, BID
     Route: 048
     Dates: start: 20170201, end: 20170203
  22. SANCUSO [Concomitant]
     Active Substance: GRANISETRON
     Dosage: 1 EA, QD; STRENGTH: 80.2X66.6 MM2
     Route: 062
     Dates: start: 20170123, end: 20170129
  23. CURAN [Concomitant]
     Active Substance: RANITIDINE HYDROCHLORIDE
     Dosage: 150 MG, BID
     Route: 048
     Dates: start: 20170111, end: 20170113
  24. CENTRUM (MINERALS (UNSPECIFIED) (+) VITAMINS (UNSPECIFIED)) [Concomitant]
     Indication: PROPHYLAXIS
     Dosage: 1 TABLET, QD
     Route: 048
     Dates: start: 20170109, end: 20170216
  25. ANZATAX (PACLITAXEL) [Concomitant]
     Active Substance: PACLITAXEL
     Dosage: 85 MG, ONCE, CYCLE 2
     Route: 042
     Dates: start: 20170110, end: 20170110
  26. DEXAMETHASONE SODIUM PHOSPHATE. [Concomitant]
     Active Substance: DEXAMETHASONE SODIUM PHOSPHATE
     Dosage: 12 MG, ONCE; STRENGTH: 5 MG/ML
     Route: 042
     Dates: start: 20170117, end: 20170117
  27. DEXAMETHASONE SODIUM PHOSPHATE. [Concomitant]
     Active Substance: DEXAMETHASONE SODIUM PHOSPHATE
     Dosage: 12 MG, ONCE; STRENGTH: 5 MG/ML
     Route: 042
     Dates: start: 20170207, end: 20170207
  28. CURAN [Concomitant]
     Active Substance: RANITIDINE HYDROCHLORIDE
     Indication: PROPHYLAXIS
     Dosage: 50 MG, ONCE; STRENGTH: 50MG/2ML
     Route: 042
     Dates: start: 20161229, end: 20161229
  29. CURAN [Concomitant]
     Active Substance: RANITIDINE HYDROCHLORIDE
     Dosage: 50 MG, ONCE; STRENGTH: 50MG/2ML
     Route: 042
     Dates: start: 20170131, end: 20170131
  30. EMEND (FOSAPREPITANT DIMEGLUMINE) [Suspect]
     Active Substance: FOSAPREPITANT DIMEGLUMINE
     Indication: PROPHYLAXIS OF NAUSEA AND VOMITING
     Dosage: 150 MG, ONCE
     Route: 042
     Dates: start: 20161229, end: 20161229
  31. EMEND (FOSAPREPITANT DIMEGLUMINE) [Suspect]
     Active Substance: FOSAPREPITANT DIMEGLUMINE
     Dosage: 150 MG, ONCE
     Route: 042
     Dates: start: 20170117, end: 20170117
  32. SANCUSO [Concomitant]
     Active Substance: GRANISETRON
     Dosage: 1 EA, QD; STRENGTH: 80.2X66.6 MM2
     Route: 062
     Dates: start: 20170130, end: 20170205
  33. CHLORPHENIRAMINE MALEATE. [Concomitant]
     Active Substance: CHLORPHENIRAMINE MALEATE
     Dosage: 4 MG, ONCE
     Route: 042
     Dates: start: 20170124, end: 20170124
  34. CHLORPHENIRAMINE MALEATE. [Concomitant]
     Active Substance: CHLORPHENIRAMINE MALEATE
     Dosage: 4 MG, ONCE
     Route: 042
     Dates: start: 20170207, end: 20170207
  35. CURAN [Concomitant]
     Active Substance: RANITIDINE HYDROCHLORIDE
     Dosage: 50 MG, ONCE; STRENGTH: 50MG/2ML
     Route: 042
     Dates: start: 20170207, end: 20170207
  36. CURAN [Concomitant]
     Active Substance: RANITIDINE HYDROCHLORIDE
     Indication: PROPHYLAXIS
     Dosage: 150 MG, BID
     Route: 048
     Dates: start: 20161230, end: 20170101
  37. CURAN [Concomitant]
     Active Substance: RANITIDINE HYDROCHLORIDE
     Dosage: 150 MG, BID
     Route: 048
     Dates: start: 20170201, end: 20170203
  38. EMEND (FOSAPREPITANT DIMEGLUMINE) [Suspect]
     Active Substance: FOSAPREPITANT DIMEGLUMINE
     Dosage: 150 MG, ONCE
     Route: 042
     Dates: start: 20170110, end: 20170110
  39. ANZATAX (PACLITAXEL) [Concomitant]
     Active Substance: PACLITAXEL
     Dosage: 86 MG, ONCE, CYCLE 4
     Route: 042
     Dates: start: 20170124, end: 20170124
  40. CISPLAN [Concomitant]
     Active Substance: CISPLATIN
     Dosage: 34.8 MG, ONCE, CYCLE 5; STRENGTH: 50MG/100ML
     Route: 042
     Dates: start: 20170131, end: 20170131
  41. DEXAMETHASONE SODIUM PHOSPHATE. [Concomitant]
     Active Substance: DEXAMETHASONE SODIUM PHOSPHATE
     Indication: PROPHYLAXIS OF NAUSEA AND VOMITING
     Dosage: 12 MG, ONCE; STRENGTH: 5 MG/ML
     Route: 042
     Dates: start: 20161229, end: 20161229
  42. DEXAMETHASONE. [Concomitant]
     Active Substance: DEXAMETHASONE
     Dosage: 4 MG, BID
     Route: 048
     Dates: start: 20170118, end: 20170120
  43. DEXAMETHASONE. [Concomitant]
     Active Substance: DEXAMETHASONE
     Dosage: 4 MG, BID
     Route: 048
     Dates: start: 20170125, end: 20170127
  44. SANCUSO [Concomitant]
     Active Substance: GRANISETRON
     Indication: PROPHYLAXIS OF NAUSEA AND VOMITING
     Dosage: 1 EA, QD; STRENGTH: 80.2X66.6 MM2
     Route: 062
     Dates: start: 20161228, end: 20170103
  45. SANCUSO [Concomitant]
     Active Substance: GRANISETRON
     Dosage: 1 EA, QD; STRENGTH: 80.2X66.6 MM2
     Route: 062
     Dates: start: 20170116, end: 20170122
  46. CHLORPHENIRAMINE MALEATE. [Concomitant]
     Active Substance: CHLORPHENIRAMINE MALEATE
     Dosage: 4 MG, ONCE
     Route: 042
     Dates: start: 20170117, end: 20170117
  47. CHLORPHENIRAMINE MALEATE. [Concomitant]
     Active Substance: CHLORPHENIRAMINE MALEATE
     Dosage: 4 MG, ONCE
     Route: 042
     Dates: start: 20170131, end: 20170131
  48. CURAN [Concomitant]
     Active Substance: RANITIDINE HYDROCHLORIDE
     Dosage: 150 MG, BID
     Route: 048
     Dates: start: 20170118, end: 20170120
  49. ANZATAX (PACLITAXEL) [Concomitant]
     Active Substance: PACLITAXEL
     Dosage: 85 MG, ONCE, CYCLE 6
     Route: 042
     Dates: start: 20170207, end: 20170207
  50. CISPLAN [Concomitant]
     Active Substance: CISPLATIN
     Dosage: 34 MG, ONCE, CYCLE 2; STRENGTH: 50MG/100ML
     Route: 042
     Dates: start: 20170110, end: 20170110
  51. CISPLAN [Concomitant]
     Active Substance: CISPLATIN
     Dosage: 34 MG, ONCE, CYCLE 3; STRENGTH: 50MG/100ML
     Route: 042
     Dates: start: 20170117, end: 20170117
  52. DEXAMETHASONE. [Concomitant]
     Active Substance: DEXAMETHASONE
     Indication: PROPHYLAXIS OF NAUSEA AND VOMITING
     Dosage: 4 MG, BID
     Route: 048
     Dates: start: 20161230, end: 20170101
  53. SANCUSO [Concomitant]
     Active Substance: GRANISETRON
     Dosage: 1 A, QD; STRENGTH: 80.2X66.6 MM2
     Route: 062
     Dates: start: 20170206, end: 20170212
  54. CURAN [Concomitant]
     Active Substance: RANITIDINE HYDROCHLORIDE
     Dosage: 50 MG, ONCE; STRENGTH: 50MG/2ML
     Route: 042
     Dates: start: 20170117, end: 20170117
  55. CURAN [Concomitant]
     Active Substance: RANITIDINE HYDROCHLORIDE
     Dosage: 50 MG, ONCE; STRENGTH: 50MG/2ML
     Route: 042
     Dates: start: 20170124, end: 20170124
  56. CURAN [Concomitant]
     Active Substance: RANITIDINE HYDROCHLORIDE
     Dosage: 150 MG, BID
     Route: 048
     Dates: start: 20170125, end: 20170127
  57. LASIX [Concomitant]
     Active Substance: FUROSEMIDE
     Dosage: 20 MG, ONCE; STRENGTH: 20MG/2ML
     Route: 042
     Dates: start: 20170110, end: 20170110
  58. CISPLAN [Concomitant]
     Active Substance: CISPLATIN
     Dosage: 34 MG, ONCE, CYCLE 6; STRENGTH: 50MG/100ML
     Route: 042
     Dates: start: 20170207, end: 20170207
  59. DEXAMETHASONE SODIUM PHOSPHATE. [Concomitant]
     Active Substance: DEXAMETHASONE SODIUM PHOSPHATE
     Dosage: 12 MG, ONCE; STRENGTH: 5 MG/ML
     Route: 042
     Dates: start: 20170131, end: 20170131
  60. DEXAMETHASONE. [Concomitant]
     Active Substance: DEXAMETHASONE
     Dosage: 4 MG, BID
     Route: 048
     Dates: start: 20170111, end: 20170113
  61. CHLORPHENIRAMINE MALEATE. [Concomitant]
     Active Substance: CHLORPHENIRAMINE MALEATE
     Indication: ALLERGY PROPHYLAXIS
     Dosage: 4 MG, ONCE
     Route: 042
     Dates: start: 20161229, end: 20161229

REACTIONS (10)
  - Cough [Recovered/Resolved]
  - Dyspepsia [Recovered/Resolved]
  - Radiation oesophagitis [Recovered/Resolved]
  - Productive cough [Recovered/Resolved]
  - Pneumonia [Recovered/Resolved]
  - Diabetes mellitus [Recovered/Resolved]
  - Hyperthermia [Recovered/Resolved]
  - Insomnia [Recovered/Resolved]
  - Paraesthesia [Not Recovered/Not Resolved]
  - Dyspepsia [Recovered/Resolved]

NARRATIVE: CASE EVENT DATE: 20170111
